FAERS Safety Report 6495942-X (Version None)
Quarter: 2009Q4

REPORT INFORMATION
  Report Type: 
  Country: None (occurrence: None)
  Receive Date: 20091214
  Receipt Date: 20090902
  Transmission Date: 20100525
  Serious: No
  Sender: FDA-Public Use
  Company Number: US-BRISTOL-MYERS SQUIBB COMPANY-14763999

PATIENT
  Age: 68 Year
  Sex: Female
  Weight: 98 kg

DRUGS (5)
  1. ABILIFY [Suspect]
     Indication: MAJOR DEPRESSION
     Dates: start: 20090801
  2. LEVOTHYROXINE SODIUM [Concomitant]
  3. OXYCONTIN [Concomitant]
  4. WELLBUTRIN [Concomitant]
  5. KLONOPIN [Concomitant]

REACTIONS (2)
  - DRY EYE [None]
  - DRY MOUTH [None]
